FAERS Safety Report 9106010 (Version 2)
Quarter: 2013Q1

REPORT INFORMATION
  Report Type: Spontaneous
  Country: US (occurrence: US)
  Receive Date: 20130220
  Receipt Date: 20130321
  Transmission Date: 20140127
  Serious: Yes (Hospitalization, Other)
  Sender: FDA-Public Use
  Company Number: US-ELI_LILLY_AND_COMPANY-US201302004015

PATIENT
  Age: 53 None
  Sex: Female
  Weight: 49.43 kg

DRUGS (13)
  1. FORTEO [Suspect]
     Indication: OSTEOPOROSIS
     Dosage: 20 UG, QD
     Dates: start: 201108, end: 20111110
  2. FORTEO [Suspect]
     Dosage: 20 UG, QD
     Dates: start: 20130114
  3. HUMALOG [Concomitant]
     Dosage: PER PUMP
     Route: 058
  4. PREDNISONE [Concomitant]
     Dosage: 10 MG, QD
  5. TOPROL [Concomitant]
     Dosage: 12.5 MG, QD
  6. PREVACID [Concomitant]
     Dosage: 120 MG, QD
  7. CREON [Concomitant]
     Dosage: WITH MEALS
  8. VITAMIN D [Concomitant]
     Dosage: 50000 U, WEEKLY (1/W)
  9. PHENERGAN [Concomitant]
     Dosage: 25 MG, QD
  10. HYDROCODONE [Concomitant]
     Indication: PAIN
     Dosage: 5/325, PRN
  11. FLORASTOR [Concomitant]
     Dosage: UNK, BID
  12. VALIUM [Concomitant]
     Indication: INSOMNIA
     Dosage: 5 MG, PRN
  13. FERREX [Concomitant]
     Dosage: 150 MG, QD

REACTIONS (4)
  - Pancreatitis chronic [Unknown]
  - Pancreatitis [Recovered/Resolved]
  - Pancreatitis [Recovered/Resolved]
  - Pancreatitis [Unknown]
